FAERS Safety Report 13111157 (Version 1)
Quarter: 2017Q1

REPORT INFORMATION
  Report Type: Report from Study
  Country: US (occurrence: US)
  Receive Date: 20170112
  Receipt Date: 20170112
  Transmission Date: 20170428
  Serious: Yes (Death, Other)
  Sender: FDA-Public Use
  Company Number: US-VIIV HEALTHCARE LIMITED-US2017GSK003390

PATIENT
  Age: 28 Year
  Sex: Female

DRUGS (3)
  1. EDURANT [Suspect]
     Active Substance: RILPIVIRINE HYDROCHLORIDE
     Indication: HIV INFECTION
     Dosage: UNK, U
     Route: 048
     Dates: start: 20161014
  2. PREZCOBIX [Suspect]
     Active Substance: COBICISTAT\DARUNAVIR ETHANOLATE
     Indication: HIV INFECTION
     Dosage: UNK, U
     Route: 048
     Dates: start: 20161014
  3. DOLUTEGRAVIR [Suspect]
     Active Substance: DOLUTEGRAVIR
     Indication: HIV INFECTION
     Dosage: UNK, U
     Route: 048
     Dates: start: 20161014

REACTIONS (3)
  - Exposure during pregnancy [Unknown]
  - Abortion spontaneous [Unknown]
  - Pneumocystis jirovecii pneumonia [Fatal]

NARRATIVE: CASE EVENT DATE: 20161229
